FAERS Safety Report 21478430 (Version 5)
Quarter: 2023Q2

REPORT INFORMATION
  Report Type: Report from Study
  Country: US (occurrence: US)
  Receive Date: 20221019
  Receipt Date: 20230519
  Transmission Date: 20230721
  Serious: Yes (Hospitalization)
  Sender: FDA-Public Use
  Company Number: US-BIOVITRUM-2022US11911

PATIENT
  Age: 52 Year
  Sex: Female

DRUGS (1)
  1. DOPTELET [Suspect]
     Active Substance: AVATROMBOPAG MALEATE
     Indication: Immune thrombocytopenia
     Dosage: 20 MILLIGRAM DAILY
     Route: 048
     Dates: start: 20220929

REACTIONS (7)
  - Nausea [Unknown]
  - Headache [Unknown]
  - Bone pain [Unknown]
  - Pelvic pain [Unknown]
  - Product dose omission in error [Unknown]
  - Inappropriate schedule of product administration [Unknown]
  - Pain [Unknown]
